FAERS Safety Report 15762626 (Version 1)
Quarter: 2018Q4

REPORT INFORMATION
  Report Type: Spontaneous
  Country: US (occurrence: US)
  Receive Date: 20181226
  Receipt Date: 20181226
  Transmission Date: 20190205
  Serious: No
  Sender: FDA-Public Use
  Company Number: US-009507513-1812USA009759

PATIENT
  Age: 61 Year
  Sex: Female

DRUGS (5)
  1. BELSOMRA [Suspect]
     Active Substance: SUVOREXANT
     Indication: INSOMNIA
     Dosage: 20 MG/ ONCE A NIGHT
     Route: 048
     Dates: start: 201810
  2. GABAPENTIN. [Concomitant]
     Active Substance: GABAPENTIN
  3. LISINOPRIL. [Concomitant]
     Active Substance: LISINOPRIL
  4. ATORVASTATIN [Concomitant]
     Active Substance: ATORVASTATIN
  5. SINGULAIR [Concomitant]
     Active Substance: MONTELUKAST SODIUM

REACTIONS (4)
  - Drug effect incomplete [Not Recovered/Not Resolved]
  - Emotional distress [Not Recovered/Not Resolved]
  - Hepatic enzyme increased [Not Recovered/Not Resolved]
  - Product dose omission [Unknown]

NARRATIVE: CASE EVENT DATE: 2018
